FAERS Safety Report 7774495-X (Version None)
Quarter: 2011Q3

REPORT INFORMATION
  Report Type: 
  Country: None (occurrence: None)
  Receive Date: 20110923
  Receipt Date: 20110914
  Transmission Date: 20111222
  Serious: Yes (Hospitalization)
  Sender: FDA-Public Use
  Company Number: US-ROCHE-782629

PATIENT
  Age: 72 Year
  Sex: Female
  Weight: 55.9 kg

DRUGS (5)
  1. CARBOPLATIN [Suspect]
     Indication: OVARIAN EPITHELIAL CANCER
     Dosage: LAST DOSE AND DATE ADMINISTERED: 553MG, 05 MAY 2011,FREQUENCY: AUC 6 IV ONDAY 1.
     Route: 042
     Dates: start: 20110324
  2. PACLITAXEL [Suspect]
     Indication: OVARIAN EPITHELIAL CANCER
     Dosage: LAST DOSE AND DATE ADMINISTERED: 553 MG,05 MAY 2011, FREQUENCY: OVER 1 HOUR ON DAYS 1,8 AND 15
     Route: 042
     Dates: start: 20110324
  3. LEVOTHYROXINE SODIUM [Concomitant]
  4. BEVACIZUMAB [Suspect]
     Indication: OVARIAN EPITHELIAL CANCER
     Dosage: LAST DOSE ADMINISTERED: 877.5 MG, FREQUENCY: OVER 30-90 MINUTES ON DAY 1,BEGINNING WITH CYCLE 2.
     Route: 042
     Dates: start: 20110324
  5. VITAMIN D [Concomitant]

REACTIONS (6)
  - NEUTROPHIL COUNT [None]
  - CLOSTRIDIUM DIFFICILE COLITIS [None]
  - LYMPHOPENIA [None]
  - SYNCOPE [None]
  - HAEMOGLOBIN [None]
  - INFECTION [None]
